FAERS Safety Report 8122878-0 (Version None)
Quarter: 2012Q1

REPORT INFORMATION
  Report Type: 
  Country: None (occurrence: None)
  Receive Date: 20120208
  Receipt Date: 20120206
  Transmission Date: 20120608
  Serious: Yes (Other)
  Sender: FDA-Public Use
  Company Number: US-TEVA-315213USA

PATIENT
  Sex: Female
  Weight: 47.67 kg

DRUGS (1)
  1. CLARAVIS [Suspect]
     Dosage: 1 CAPSULE ON ODD DAYS, 2 ON EVEN DAYS
     Route: 048
     Dates: start: 20110603, end: 20111222

REACTIONS (1)
  - UNINTENDED PREGNANCY [None]
